FAERS Safety Report 10331297 (Version 2)
Quarter: 2014Q3

REPORT INFORMATION
  Report Type: Spontaneous
  Country: US (occurrence: US)
  Receive Date: 20140722
  Receipt Date: 20140722
  Transmission Date: 20150326
  Serious: No
  Sender: FDA-Public Use
  Company Number: US-TEVA-485435USA

PATIENT
  Sex: Female

DRUGS (1)
  1. FLUCONAZOLE. [Suspect]
     Active Substance: FLUCONAZOLE
     Indication: VAGINAL INFECTION
     Dosage: SINGLE DOSE

REACTIONS (2)
  - Drug ineffective [Unknown]
  - Therapeutic response changed [Unknown]
